FAERS Safety Report 6039736-8 (Version None)
Quarter: 2009Q1

REPORT INFORMATION
  Report Type: 
  Country: None (occurrence: None)
  Receive Date: 20090116
  Receipt Date: 20090115
  Transmission Date: 20090719
  Serious: Yes (Life-Threatening)
  Sender: FDA-Public Use
  Company Number: FR-ASTRAZENECA-2009CG00155

PATIENT
  Age: 43 Year
  Sex: Male

DRUGS (2)
  1. DIPRIVAN [Suspect]
     Indication: INDUCTION OF ANAESTHESIA
     Route: 042
     Dates: start: 20060920, end: 20060920
  2. CELOCURIN [Suspect]
     Indication: INDUCTION OF ANAESTHESIA
     Route: 042
     Dates: start: 20060920, end: 20060920

REACTIONS (2)
  - CARDIO-RESPIRATORY ARREST [None]
  - CYANOSIS [None]
